FAERS Safety Report 10195969 (Version 1)
Quarter: 2014Q2

REPORT INFORMATION
  Report Type: Spontaneous
  Country: FR (occurrence: FR)
  Receive Date: 20140527
  Receipt Date: 20140527
  Transmission Date: 20141212
  Serious: Yes (Hospitalization)
  Sender: FDA-Public Use
  Company Number: PHHY2014FR062582

PATIENT
  Age: 70 Year
  Sex: Male

DRUGS (2)
  1. ZOMETA [Suspect]
     Indication: METASTASES TO BONE
     Dosage: UNK UKN, UNK
     Route: 042
     Dates: start: 201203, end: 201210
  2. AVASTIN [Concomitant]
     Dosage: UNK UKN, UNK

REACTIONS (1)
  - Osteonecrosis [Not Recovered/Not Resolved]
